FAERS Safety Report 11117700 (Version 2)
Quarter: 2015Q2

REPORT INFORMATION
  Report Type: Spontaneous
  Country: DE (occurrence: DE)
  Receive Date: 20150518
  Receipt Date: 20150612
  Transmission Date: 20150821
  Serious: Yes (Hospitalization)
  Sender: FDA-Public Use
  Company Number: DE-UCBSA-2015009194

PATIENT
  Sex: Male

DRUGS (6)
  1. VIMPAT [Suspect]
     Active Substance: LACOSAMIDE
     Indication: PRODUCT USED FOR UNKNOWN INDICATION
     Dosage: 250 MG, UNK
  2. VIMPAT [Suspect]
     Active Substance: LACOSAMIDE
     Dosage: SLOWLY DOSE DECREASED AND FINALLY DISCONTINUED
     Route: 048
     Dates: start: 201501, end: 2015
  3. ZONISAMIDE. [Concomitant]
     Active Substance: ZONISAMIDE
     Indication: PRODUCT USED FOR UNKNOWN INDICATION
  4. VIMPAT [Suspect]
     Active Substance: LACOSAMIDE
     Dosage: 125 MG
  5. VIMPAT [Suspect]
     Active Substance: LACOSAMIDE
     Dosage: SLOWLY INCREASE OF DOSAGE UP TO 150 MG TWICE DAILY
     Route: 048
     Dates: start: 201411
  6. LEVETIRACETAM. [Suspect]
     Active Substance: LEVETIRACETAM
     Indication: PRODUCT USED FOR UNKNOWN INDICATION
     Dosage: 1250 MG, 2X/DAY (BID)
     Route: 048

REACTIONS (7)
  - Learning disorder [Recovered/Resolved]
  - Fatigue [Recovered/Resolved]
  - Head discomfort [Recovered/Resolved]
  - Partial seizures [Recovered/Resolved]
  - Off label use [Unknown]
  - Dysgeusia [Recovered/Resolved]
  - Parosmia [Recovered/Resolved]
